FAERS Safety Report 9808828 (Version 1)
Quarter: 2014Q1

REPORT INFORMATION
  Report Type: Spontaneous
  Country: US (occurrence: US)
  Receive Date: 20140110
  Receipt Date: 20140110
  Transmission Date: 20141002
  Serious: Yes (Death)
  Sender: FDA-Public Use
  Company Number: US-BAYER-2014-000125

PATIENT
  Age: 11 Month
  Sex: Male

DRUGS (2)
  1. NIFEDIPINE [Suspect]
  2. AMLODIPINE W/BENAZEPRIL [Suspect]

REACTIONS (1)
  - Toxicity to various agents [Fatal]
